FAERS Safety Report 4339414-7 (Version None)
Quarter: 2004Q2

REPORT INFORMATION
  Report Type: 
  Country: None (occurrence: None)
  Receive Date: 20040415
  Receipt Date: 20040407
  Transmission Date: 20050107
  Serious: Yes (Hospitalization, Other)
  Sender: FDA-Public Use
  Company Number: PHBS2004BE04742

PATIENT
  Age: 78 Year
  Sex: Male

DRUGS (1)
  1. LAMISIL [Suspect]
     Indication: FUNGAL SKIN INFECTION
     Dosage: 250 MG/DAY
     Route: 048
     Dates: start: 20040101

REACTIONS (10)
  - ANGINA PECTORIS [None]
  - BONE MARROW DISORDER [None]
  - EOSINOPHIL COUNT INCREASED [None]
  - FATIGUE [None]
  - HAEMOGLOBIN DECREASED [None]
  - LEUKOPENIA [None]
  - LYMPHOCYTE PERCENTAGE INCREASED [None]
  - MITRAL VALVE DISEASE [None]
  - NEUTROPHIL PERCENTAGE DECREASED [None]
  - PLATELET COUNT DECREASED [None]
